FAERS Safety Report 13650531 (Version 1)
Quarter: 2017Q2

REPORT INFORMATION
  Report Type: Spontaneous
  Country: US (occurrence: US)
  Receive Date: 20170614
  Receipt Date: 20170614
  Transmission Date: 20170830
  Serious: Yes (Hospitalization)
  Sender: FDA-Public Use
  Company Number: None

PATIENT
  Age: 77 Year
  Sex: Male
  Weight: 103 kg

DRUGS (16)
  1. ALBUTEROL HFA (PROAIR HFA) [Concomitant]
  2. ASCORBIC ACID. [Concomitant]
     Active Substance: ASCORBIC ACID
  3. ASPIRIN (ASPIR-81) [Concomitant]
  4. VITAMIN E [Concomitant]
     Active Substance: .ALPHA.-TOCOPHEROL
  5. FLAXSEED [Concomitant]
     Active Substance: FLAX SEED
  6. LISINOPRIL-HYDROCHLOROTHIAZIDE (PRINZIDE, ZESTORETIC) [Concomitant]
  7. VITAMIN C (VITAMIN C) [Concomitant]
     Active Substance: ASCORBIC ACID
  8. METOPROLOL TARTRATE (LOPRESSOR) [Concomitant]
  9. PROSCAR [Concomitant]
     Active Substance: FINASTERIDE
  10. PEMBROLIZUMAB. [Suspect]
     Active Substance: PEMBROLIZUMAB
     Indication: NEUROENDOCRINE CARCINOMA OF THE SKIN
     Dosage: OTHER FREQUENCY:EVERY 21 DAYS;?
     Route: 041
     Dates: start: 20170221, end: 20170425
  11. FLUTICASONE-SALMETEROL (ADVAIR) [Concomitant]
  12. XARELTO [Concomitant]
     Active Substance: RIVAROXABAN
  13. CHOLECALCIFEROL (VITAMIN D3) [Concomitant]
  14. VITAMIN B [Concomitant]
     Active Substance: VITAMIN B
  15. VITAMIN C [Concomitant]
     Active Substance: ASCORBIC ACID
  16. LIDOCAINE-PRILOCAINE (EMLA) [Concomitant]

REACTIONS (8)
  - Pneumonitis [None]
  - Computerised tomogram thorax abnormal [None]
  - Hypotension [None]
  - Dyspnoea [None]
  - Arthritis [None]
  - Dyspnoea exertional [None]
  - Crepitations [None]
  - Cough [None]

NARRATIVE: CASE EVENT DATE: 20170531
